FAERS Safety Report 6991741-0 (Version None)
Quarter: 2010Q3

REPORT INFORMATION
  Report Type: 
  Country: None (occurrence: None)
  Receive Date: 20100915
  Receipt Date: 20100915
  Transmission Date: 20110219
  Serious: Yes (Death, Hospitalization)
  Sender: FDA-Public Use
  Company Number: None

PATIENT
  Age: 46 Year
  Sex: Female
  Weight: 85.2762 kg

DRUGS (2)
  1. BENDAMUSTINE 100MG VIALS FOR RECONSTITUTION CEPHALON [Suspect]
     Indication: BREAST CANCER
     Dosage: 234MG D1+2 Q 28 DAYS IV
     Route: 042
     Dates: start: 20091228, end: 20100325
  2. ERLOTINIB HYDROCHLORIDE [Suspect]
     Indication: BREAST CANCER
     Dosage: 150MG D5-21 Q 28 DAYS PO
     Route: 048
     Dates: start: 20100101, end: 20100413

REACTIONS (20)
  - BONE MARROW DISORDER [None]
  - BRONCHIOLITIS [None]
  - CANDIDA TEST POSITIVE [None]
  - CHEST PAIN [None]
  - FLUID INTAKE REDUCED [None]
  - FUNGAL INFECTION [None]
  - HYPERKALAEMIA [None]
  - HYPONATRAEMIA [None]
  - HYPOPHAGIA [None]
  - HYPOVOLAEMIA [None]
  - INAPPROPRIATE ANTIDIURETIC HORMONE SECRETION [None]
  - LETHARGY [None]
  - LYMPHOPENIA [None]
  - METASTASES TO CENTRAL NERVOUS SYSTEM [None]
  - PANCYTOPENIA [None]
  - PNEUMOCYSTIS JIROVECI PNEUMONIA [None]
  - PNEUMONIA KLEBSIELLA [None]
  - PNEUMONIA STAPHYLOCOCCAL [None]
  - TRANSAMINASES INCREASED [None]
  - VIRAL INFECTION [None]
